FAERS Safety Report 14216286 (Version 2)
Quarter: 2018Q1

REPORT INFORMATION
  Report Type: Spontaneous
  Country: FR (occurrence: FR)
  Receive Date: 20171122
  Receipt Date: 20180328
  Transmission Date: 20180508
  Serious: Yes (Hospitalization)
  Sender: FDA-Public Use
  Company Number: FR-INDIVIOR LIMITED-INDV-106447-2017

PATIENT
  Age: 42 Year
  Sex: Male

DRUGS (4)
  1. SUBUTEX [Suspect]
     Active Substance: BUPRENORPHINE HYDROCHLORIDE
     Indication: DRUG DEPENDENCE
     Dosage: UNK
     Route: 042
  2. SUBUTEX [Suspect]
     Active Substance: BUPRENORPHINE HYDROCHLORIDE
     Dosage: 4 MG, BID(ONE IN MORNING AND ONE IN EVENING)
     Route: 065
     Dates: start: 20161010
  3. NSAIDS [Concomitant]
     Active Substance: UNSPECIFIED INGREDIENT
     Indication: SCIATICA
     Dosage: UNK
     Route: 065
  4. SUBUTEX [Suspect]
     Active Substance: BUPRENORPHINE HYDROCHLORIDE
     Indication: DRUG USE DISORDER
     Dosage: 4 MG, QD(SINGLE DOSE)
     Route: 042
     Dates: start: 20161002, end: 20161002

REACTIONS (4)
  - Intentional product misuse [Unknown]
  - Intentional product use issue [Unknown]
  - Drug use disorder [Not Recovered/Not Resolved]
  - Injection site abscess [Recovering/Resolving]

NARRATIVE: CASE EVENT DATE: 201610
